FAERS Safety Report 13228740 (Version 1)
Quarter: 2017Q1

REPORT INFORMATION
  Report Type: Spontaneous
  Country: US (occurrence: US)
  Receive Date: 20170213
  Receipt Date: 20170213
  Transmission Date: 20170428
  Serious: No
  Sender: FDA-Public Use
  Company Number: US-ROCHE-1835187

PATIENT
  Sex: Female
  Weight: 76.73 kg

DRUGS (1)
  1. XOLAIR [Suspect]
     Active Substance: OMALIZUMAB
     Indication: ASTHMA
     Route: 058

REACTIONS (7)
  - Dyspnoea [Unknown]
  - Muscle spasms [Unknown]
  - Rhinorrhoea [Unknown]
  - Pruritus [Unknown]
  - Chest pain [Unknown]
  - Sensory disturbance [Unknown]
  - Headache [Unknown]
